FAERS Safety Report 6984528-6 (Version None)
Quarter: 2010Q3

REPORT INFORMATION
  Report Type: 
  Country: None (occurrence: None)
  Receive Date: 20100826
  Receipt Date: 20100819
  Transmission Date: 20110219
  Serious: Yes (Other)
  Sender: FDA-Public Use
  Company Number: IDA-00414

PATIENT
  Age: 11 Month
  Sex: Female

DRUGS (3)
  1. PROPRANOLOL HCL [Suspect]
     Indication: HAEMANGIOMA
     Dosage: ORAL, 0.3 MG/KG/DAY TITRATING TO 2 MG/KG/DAY, DIVIDED EVERY EIGHT HOURS; 3 WEEKS
     Route: 048
  2. IBUPROFEN [Suspect]
     Indication: TEETHING
     Dosage: 1 DOSE
  3. BENZOCAINE GEL [Suspect]
     Indication: TEETHING
     Dosage: SMALL AMOUNT APPLIED TO GUMS

REACTIONS (1)
  - HYPOGLYCAEMIA [None]
